FAERS Safety Report 13338589 (Version 1)
Quarter: 2017Q1

REPORT INFORMATION
  Report Type: Spontaneous
  Country: GB (occurrence: GB)
  Receive Date: 20170315
  Receipt Date: 20170315
  Transmission Date: 20170428
  Serious: Yes (Other)
  Sender: FDA-Public Use
  Company Number: GB-PFIZER INC-2017109911

PATIENT
  Age: 70 Year
  Sex: Female
  Weight: 63 kg

DRUGS (8)
  1. ACICLOVIR [Concomitant]
     Active Substance: ACYCLOVIR
     Dosage: 1 DF, 2X/DAY
     Dates: start: 20160729
  2. CANDESARTAN [Concomitant]
     Active Substance: CANDESARTAN
     Dosage: 1 DF, 1X/DAY
     Dates: start: 20170224
  3. AMLODIPINE BESILATE [Suspect]
     Active Substance: AMLODIPINE BESYLATE
     Dosage: UNK
     Dates: start: 20160729
  4. LANSOPRAZOLE. [Concomitant]
     Active Substance: LANSOPRAZOLE
     Dosage: 1 DF, 1X/DAY (AT LEAST FOUR HOURS APART ...
     Dates: start: 20160729, end: 20170222
  5. CARBOMER [Concomitant]
     Active Substance: CARBOMER
     Dosage: CARBOMER 980
     Dates: start: 20160729
  6. RAMIPRIL. [Concomitant]
     Active Substance: RAMIPRIL
     Dosage: 1 DF, 1X/DAY, EACH MOTNING
     Dates: start: 20160729, end: 20170222
  7. LEVOTHYROXINE. [Concomitant]
     Active Substance: LEVOTHYROXINE
     Dosage: AS DIRECTED
     Dates: start: 20160729
  8. SIMVASTATIN. [Concomitant]
     Active Substance: SIMVASTATIN
     Dosage: 1 DF, 1X/DAY, NOCTE
     Dates: start: 20160729

REACTIONS (3)
  - Pruritus [Recovered/Resolved]
  - Rash [Unknown]
  - Burning sensation [Unknown]

NARRATIVE: CASE EVENT DATE: 20170227
